FAERS Safety Report 7734286-2 (Version None)
Quarter: 2011Q3

REPORT INFORMATION
  Report Type: 
  Country: None (occurrence: None)
  Receive Date: 20110901
  Receipt Date: 20110817
  Transmission Date: 20111222
  Serious: Yes (Other)
  Sender: FDA-Public Use
  Company Number: US-1187230

PATIENT
  Age: 61 Year
  Sex: Male
  Weight: 86.4 kg

DRUGS (10)
  1. ACETAZOLAMIDE [Concomitant]
  2. BSS INTRAOCULAR SOLUTION [Suspect]
     Indication: CATARACT OPERATION
     Dosage: (500 ML INTRAOCULAR)
     Route: 031
     Dates: start: 20110713, end: 20110713
  3. FLURBIPROFEN SODIUM [Concomitant]
  4. FLUOXETINE [Concomitant]
  5. CYCLOPENTOLATE HCL [Concomitant]
  6. NICOTINE [Concomitant]
  7. EPINEPHRINE [Concomitant]
  8. PREDNISOLONE ACETATE [Concomitant]
  9. CLONAZEPAM [Concomitant]
  10. PHENYLEPHRINE  HYDROCHLORIDE [Concomitant]

REACTIONS (1)
  - TOXIC ANTERIOR SEGMENT SYNDROME [None]
